FAERS Safety Report 16192367 (Version 1)
Quarter: 2019Q2

REPORT INFORMATION
  Report Type: Spontaneous
  Country: CN (occurrence: CN)
  Receive Date: 20190412
  Receipt Date: 20190412
  Transmission Date: 20190711
  Serious: Yes (Other)
  Sender: FDA-Public Use
  Company Number: CN-ALLERGAN-1915839US

PATIENT
  Sex: Male

DRUGS (3)
  1. MESALAZINE UNK [Suspect]
     Active Substance: MESALAMINE
     Dosage: 1 G, TID
     Route: 048
  2. MESALAZINE UNK [Suspect]
     Active Substance: MESALAMINE
     Dosage: 0.5 G, TID
     Route: 054
  3. MESALAZINE UNK [Suspect]
     Active Substance: MESALAMINE
     Indication: COLITIS ULCERATIVE
     Dosage: 1 G, TID
     Route: 054

REACTIONS (5)
  - Diarrhoea haemorrhagic [Unknown]
  - Pyrexia [Unknown]
  - Abdominal pain [Unknown]
  - Off label use [Unknown]
  - Drug ineffective [Unknown]
